FAERS Safety Report 18050689 (Version 1)
Quarter: 2020Q3

REPORT INFORMATION
  Report Type: Spontaneous
  Country: CH (occurrence: CH)
  Receive Date: 20200721
  Receipt Date: 20200721
  Transmission Date: 20201103
  Serious: Yes (Other)
  Sender: FDA-Public Use
  Company Number: CH-BAYER-2020-147665

PATIENT
  Sex: Female
  Weight: 4.55 kg

DRUGS (1)
  1. JAYDESS [Suspect]
     Active Substance: LEVONORGESTREL
     Dosage: 14 ?G/24H CONTINOUSLY
     Route: 064
     Dates: end: 201910

REACTIONS (2)
  - Foetal exposure during pregnancy [None]
  - Foetal macrosomia [None]
